FAERS Safety Report 18255332 (Version 2)
Quarter: 2020Q3

REPORT INFORMATION
  Report Type: Spontaneous
  Country: CN (occurrence: CN)
  Receive Date: 20200910
  Receipt Date: 20200911
  Transmission Date: 20201103
  Serious: Yes (Hospitalization)
  Sender: FDA-Public Use
  Company Number: CN-ELI_LILLY_AND_COMPANY-CN202009003750

PATIENT
  Age: 63 Year
  Sex: Female

DRUGS (2)
  1. HUMULIN R [Suspect]
     Active Substance: INSULIN HUMAN
     Indication: TYPE 2 DIABETES MELLITUS
     Dosage: 10 U, BID
     Route: 058
     Dates: start: 2015
  2. HUMULIN R [Suspect]
     Active Substance: INSULIN HUMAN
     Dosage: 5 U, DAILY
     Route: 058
     Dates: start: 2015

REACTIONS (2)
  - Blood glucose abnormal [Unknown]
  - Hypoacusis [Unknown]
